FAERS Safety Report 4852251-X (Version None)
Quarter: 2005Q4

REPORT INFORMATION
  Report Type: 
  Country: None (occurrence: None)
  Receive Date: 20051213
  Receipt Date: 20051128
  Transmission Date: 20060501
  Serious: Yes (Hospitalization)
  Sender: FDA-Public Use
  Company Number: SEWYE183929NOV05

PATIENT
  Age: 45 Year
  Sex: Female

DRUGS (10)
  1. ENBREL [Suspect]
     Indication: RHEUMATOID ARTHRITIS
     Dates: start: 20041001, end: 20051001
  2. SALAZOPYRIN [Concomitant]
     Dosage: 4 TABLETS PER DAY
  3. HYDROXYCHLOROQUINE SULFATE [Concomitant]
  4. RAMIPRIL [Concomitant]
     Dosage: 10 MG PER DAY
  5. NORVASC [Concomitant]
  6. ASPIRIN [Concomitant]
  7. HUMALOG [Concomitant]
     Dosage: NOT SPECIFIED
  8. LANSOPRAZOLE [Concomitant]
  9. FURESIS [Concomitant]
  10. PREDNISOLONE [Concomitant]
     Dosage: NOT SPECIFIED

REACTIONS (5)
  - ANTINUCLEAR ANTIBODY [None]
  - HEADACHE [None]
  - PLEUROPERICARDITIS [None]
  - PYREXIA [None]
  - SHOULDER PAIN [None]
